FAERS Safety Report 13181754 (Version 3)
Quarter: 2017Q2

REPORT INFORMATION
  Report Type: Spontaneous
  Country: US (occurrence: US)
  Receive Date: 20170202
  Receipt Date: 20170403
  Transmission Date: 20170830
  Serious: No
  Sender: FDA-Public Use
  Company Number: US-ACTELION-A-US2017-149422

PATIENT
  Age: 69 Year
  Sex: Female
  Weight: 60.32 kg

DRUGS (2)
  1. OPSUMIT [Suspect]
     Active Substance: MACITENTAN
     Indication: PULMONARY ARTERIAL HYPERTENSION
     Dosage: 10 MG, QD
     Route: 048
  2. ADCIRCA [Concomitant]
     Active Substance: TADALAFIL

REACTIONS (7)
  - Headache [Unknown]
  - Fatigue [Unknown]
  - Nasal congestion [Unknown]
  - Eye pruritus [Unknown]
  - Diarrhoea [Unknown]
  - Eye irritation [Unknown]
  - Ocular hyperaemia [Unknown]
